FAERS Safety Report 9295104 (Version 1)
Quarter: 2013Q1

REPORT INFORMATION
  Report Type: Spontaneous
  Country: US (occurrence: None)
  Receive Date: 20121227
  Receipt Date: 20121227
  Transmission Date: 20140127
  Serious: No
  Sender: FDA-Public Use
  Company Number: PHEH2012US020851

PATIENT
  Age: 8 Year
  Sex: Female
  Weight: 50 kg

DRUGS (6)
  1. AFINITOR [Suspect]
     Indication: TUBEROUS SCLEROSIS
     Route: 048
     Dates: start: 20121006
  2. DEPAKOTE (VALPROATE SEMISODIUM) [Concomitant]
  3. TOPAMAX (TOPIRAMATE) [Concomitant]
  4. CLONAZEPAM (CLONAZEPAM) (CLONAZEPAM) [Concomitant]
  5. TRILEPTAL (OXCARBAZEPINE) [Concomitant]
  6. SEPTRA (SULFAMETHOXAZOLE, TRIMETHOPRIM) [Concomitant]

REACTIONS (3)
  - Abdominal pain upper [None]
  - Stomatitis [None]
  - Rash [None]
